FAERS Safety Report 6138274-1 (Version None)
Quarter: 2009Q1

REPORT INFORMATION
  Report Type: 
  Country: None (occurrence: None)
  Receive Date: 20090331
  Receipt Date: 20090327
  Transmission Date: 20090719
  Serious: Yes (Other)
  Sender: FDA-Public Use
  Company Number: B0567246A

PATIENT
  Sex: Male

DRUGS (8)
  1. AUGMENTIN '125' [Suspect]
     Indication: BRONCHITIS
     Dosage: 3G PER DAY
     Route: 048
     Dates: start: 20081206, end: 20081223
  2. MINOCIN [Suspect]
     Indication: BRONCHITIS
     Dosage: 1CAP PER DAY
     Route: 048
     Dates: start: 20090102, end: 20090105
  3. DOLIPRANE [Suspect]
     Indication: BRONCHITIS
     Dosage: 3G PER DAY
     Route: 048
     Dates: start: 20081206, end: 20090103
  4. DIMETANE [Suspect]
     Indication: BRONCHITIS
     Route: 048
     Dates: start: 20081220, end: 20090108
  5. CARDENSIEL [Concomitant]
     Route: 048
  6. ULTRALEVURE [Concomitant]
     Dosage: 200MG PER DAY
     Route: 065
     Dates: start: 20081206, end: 20081223
  7. BRONCHOKOD [Concomitant]
     Route: 065
     Dates: start: 20081206, end: 20081216
  8. CORTANCYL [Concomitant]
     Dosage: 60MG PER DAY
     Route: 065
     Dates: start: 20081220, end: 20081227

REACTIONS (7)
  - CELL DEATH [None]
  - CHROMATURIA [None]
  - HEPATITIS CHOLESTATIC [None]
  - JAUNDICE [None]
  - MIXED LIVER INJURY [None]
  - RED BLOOD CELL SEDIMENTATION RATE INCREASED [None]
  - TRANSAMINASES INCREASED [None]
